FAERS Safety Report 4389928-9 (Version None)
Quarter: 2004Q2

REPORT INFORMATION
  Report Type: 
  Country: None (occurrence: None)
  Receive Date: 20040630
  Receipt Date: 20040615
  Transmission Date: 20050107
  Serious: Yes (Hospitalization)
  Sender: FDA-Public Use
  Company Number: 205055

PATIENT
  Age: 51 Year
  Sex: Female
  Weight: 56 kg

DRUGS (5)
  1. HERCEPTIN [Suspect]
     Indication: BREAST CANCER METASTATIC
     Dosage: SEE IMAGE
     Route: 042
     Dates: start: 20030106, end: 20030106
  2. HERCEPTIN [Suspect]
     Indication: BREAST CANCER METASTATIC
     Dosage: SEE IMAGE
     Route: 042
     Dates: start: 20030114, end: 20030618
  3. HERCEPTIN [Suspect]
     Indication: BREAST CANCER METASTATIC
     Dosage: SEE IMAGE
     Route: 042
     Dates: start: 20030625
  4. CARBOPLATIN [Suspect]
     Indication: BREAST CANCER
     Dosage: 560 MG, INTRAVENOUS
     Route: 042
     Dates: start: 20030107, end: 20030604
  5. TAXOTERE [Suspect]
     Indication: BREAST CANCER
     Dosage: 116 MG, Q3W, INTRAVENOUS
     Route: 042
     Dates: start: 20030107, end: 20030604

REACTIONS (4)
  - APPENDICITIS [None]
  - FEMORAL HERNIA [None]
  - GASTROINTESTINAL INFECTION [None]
  - WHITE BLOOD CELL COUNT DECREASED [None]
